FAERS Safety Report 9387944 (Version 2)
Quarter: 2013Q4

REPORT INFORMATION
  Report Type: Spontaneous
  Country: BR (occurrence: BR)
  Receive Date: 20130708
  Receipt Date: 20131015
  Transmission Date: 20140711
  Serious: Yes (Life-Threatening, Hospitalization, Disabling)
  Sender: FDA-Public Use
  Company Number: BR-BAYER-2013-082139

PATIENT
  Age: 21 Year
  Sex: Female
  Weight: 40 kg

DRUGS (1)
  1. YAZ (24) [Suspect]
     Indication: POLYCYSTIC OVARIES
     Dosage: UNK
     Route: 048
     Dates: start: 201303, end: 20130527

REACTIONS (8)
  - Weight decreased [Unknown]
  - Syncope [Recovered/Resolved with Sequelae]
  - Cardio-respiratory arrest [Recovered/Resolved with Sequelae]
  - Pulmonary thrombosis [Recovered/Resolved with Sequelae]
  - Pulmonary embolism [Recovered/Resolved with Sequelae]
  - Coma [Recovered/Resolved]
  - Coordination abnormal [Recovered/Resolved]
  - Memory impairment [Not Recovered/Not Resolved]
